FAERS Safety Report 8675889 (Version 5)
Quarter: 2013Q3

REPORT INFORMATION
  Report Type: Report from Study
  Country: US (occurrence: US)
  Receive Date: 20120720
  Receipt Date: 20130807
  Transmission Date: 20140515
  Serious: Yes (Hospitalization, Other)
  Sender: FDA-Public Use
  Company Number: PHEH2012US008903

PATIENT
  Age: 68 Year
  Sex: Female
  Weight: 47.62 kg

DRUGS (9)
  1. GILENYA [Suspect]
     Indication: MULTIPLE SCLEROSIS
     Dosage: 0.5 MG, DAILY
     Route: 048
     Dates: start: 20111101
  2. AMANTADINE [Concomitant]
     Dosage: 100 MG, UNK
  3. CRANBERRY BERCO [Concomitant]
     Dosage: 200 MG, UNK
  4. ASPIRIN (E.C.) [Concomitant]
     Dosage: 81 MG, UNK
  5. DONEPEZIL HYDROCHLORIDE [Concomitant]
     Dosage: 5 MG, UNK
  6. ATENOLOL [Concomitant]
     Dosage: 25 MG, UNK
  7. SERTRALINE HYDROCHLORIDE [Concomitant]
     Dosage: 25 MG, UNK
  8. BACLOFEN [Concomitant]
     Dosage: 10 MG, UNK
  9. KLOR-CON [Concomitant]
     Dosage: 10 MEQ, UNK

REACTIONS (5)
  - Malaise [Recovering/Resolving]
  - Depression [Recovered/Resolved]
  - Apathy [Recovering/Resolving]
  - Feeling abnormal [Recovering/Resolving]
  - Decreased interest [Recovering/Resolving]
